FAERS Safety Report 6975206-8 (Version None)
Quarter: 2010Q3

REPORT INFORMATION
  Report Type: 
  Country: None (occurrence: None)
  Receive Date: 20100910
  Receipt Date: 20090218
  Transmission Date: 20110219
  Serious: No
  Sender: FDA-Public Use
  Company Number: US-WYE-H08264609

PATIENT
  Sex: Female
  Weight: 83.99 kg

DRUGS (4)
  1. PRISTIQ [Suspect]
     Indication: OBSESSIVE-COMPULSIVE DISORDER
     Route: 048
     Dates: start: 20090211
  2. MIDRIN [Concomitant]
  3. ZOLOFT [Suspect]
     Dosage: UNKNOWN
     Dates: end: 20090210
  4. AMOXICILLIN [Concomitant]

REACTIONS (4)
  - ABNORMAL DREAMS [None]
  - DIZZINESS [None]
  - IRRITABILITY [None]
  - SOMNOLENCE [None]
